FAERS Safety Report 7246451-1 (Version None)
Quarter: 2011Q1

REPORT INFORMATION
  Report Type: 
  Country: None (occurrence: None)
  Receive Date: 20110126
  Receipt Date: 20101222
  Transmission Date: 20110831
  Serious: Yes (Other)
  Sender: FDA-Public Use
  Company Number: US-AMGEN-USASP2010013144

PATIENT
  Age: 57 Year
  Sex: Female

DRUGS (2)
  1. ENBREL [Suspect]
     Indication: PRODUCT USED FOR UNKNOWN INDICATION
  2. HUMIRA [Concomitant]
     Indication: PSORIASIS
     Dosage: 40 MG, Q2WK
     Dates: start: 20101115

REACTIONS (7)
  - DIABETES MELLITUS [None]
  - DEPRESSION [None]
  - FEELING ABNORMAL [None]
  - NASAL CONGESTION [None]
  - NEPHROLITHIASIS [None]
  - RHINORRHOEA [None]
  - NASOPHARYNGITIS [None]
